FAERS Safety Report 5518297-3 (Version None)
Quarter: 2007Q4

REPORT INFORMATION
  Report Type: 
  Country: None (occurrence: None)
  Receive Date: 20071113
  Receipt Date: 20071113
  Transmission Date: 20080405
  Serious: Yes (Hospitalization)
  Sender: FDA-Public Use
  Company Number: None

PATIENT
  Sex: Female
  Weight: 96 kg

DRUGS (9)
  1. BEVACIZUMAB (GENENTECH) [Suspect]
     Indication: GLIOBLASTOMA MULTIFORME
     Dosage: 958MG IV EVERY 2 WEEK
     Route: 042
     Dates: start: 20070910, end: 20071104
  2. TEMOZOLOMIDE [Suspect]
     Indication: GLIOBLASTOMA MULTIFORME
     Dosage: 100 MG DAILY
     Dates: start: 20070910, end: 20071104
  3. DECADRON [Concomitant]
  4. DOXYCYCLINE [Concomitant]
  5. NEXIUM [Concomitant]
  6. KEPPRA [Concomitant]
  7. ZOLOFT [Concomitant]
  8. HYOSCYAMINE [Concomitant]
  9. ZOFRAN [Concomitant]

REACTIONS (4)
  - COLITIS [None]
  - CONSTIPATION [None]
  - HAEMORRHOIDS [None]
  - LOWER GASTROINTESTINAL HAEMORRHAGE [None]
